FAERS Safety Report 5372189-1 (Version None)
Quarter: 2007Q2

REPORT INFORMATION
  Report Type: 
  Country: None (occurrence: None)
  Receive Date: 20070627
  Receipt Date: 20070622
  Transmission Date: 20071010
  Serious: Yes (Hospitalization)
  Sender: FDA-Public Use
  Company Number: A0660270A

PATIENT
  Sex: Female

DRUGS (11)
  1. COREG [Suspect]
     Dosage: 3.125TAB TWICE PER DAY
     Route: 048
     Dates: end: 20061101
  2. BENICAR [Concomitant]
  3. LASIX [Concomitant]
  4. LIQUID POTASSIUM [Concomitant]
  5. ASPIRIN [Concomitant]
  6. UNKNOWN [Concomitant]
  7. COZAAR [Concomitant]
  8. LACTULOSE [Concomitant]
  9. NAMENDA [Concomitant]
  10. CALCIUM CHLORIDE [Concomitant]
  11. MULTI-VITAMIN [Concomitant]

REACTIONS (7)
  - DEHYDRATION [None]
  - DYSARTHRIA [None]
  - FLUID RETENTION [None]
  - RENAL FAILURE [None]
  - SPEECH DISORDER [None]
  - TRANSIENT ISCHAEMIC ATTACK [None]
  - URINARY TRACT INFECTION [None]
